FAERS Safety Report 5988961-0 (Version None)
Quarter: 2008Q4

REPORT INFORMATION
  Report Type: 
  Country: None (occurrence: None)
  Receive Date: 20081209
  Receipt Date: 20081209
  Transmission Date: 20090506
  Serious: Yes (Hospitalization)
  Sender: FDA-Public Use
  Company Number: None

PATIENT
  Age: 71 Year
  Sex: Male
  Weight: 107.5025 kg

DRUGS (2)
  1. PACLITAXEL [Suspect]
     Dosage: 80MG/M2 DAYS 1,8,15,22
     Dates: start: 20080403, end: 20080702
  2. CETUXIMAB [Suspect]
     Dosage: 250MG/M2 DAYS 1,8,15,22
     Dates: start: 20080403, end: 20080702

REACTIONS (4)
  - CARDIAC FAILURE CONGESTIVE [None]
  - CEREBRAL DISORDER [None]
  - HYPOMAGNESAEMIA [None]
  - MENINGIOMA [None]
